FAERS Safety Report 16154810 (Version 3)
Quarter: 2019Q2

REPORT INFORMATION
  Report Type: Spontaneous
  Country: US (occurrence: US)
  Receive Date: 20190403
  Receipt Date: 20190523
  Transmission Date: 20190711
  Serious: Yes (Hospitalization, Other)
  Sender: FDA-Public Use
  Company Number: US-GILEAD-2019-0400366

PATIENT
  Age: 63 Year
  Sex: Male
  Weight: 96.8 kg

DRUGS (1)
  1. HARVONI [Suspect]
     Active Substance: LEDIPASVIR\SOFOSBUVIR
     Indication: CHRONIC HEPATITIS C
     Dosage: UNK
     Route: 065
     Dates: start: 20180324, end: 20180518

REACTIONS (28)
  - Palpitations [Unknown]
  - Depression [Unknown]
  - Arthralgia [Unknown]
  - Weight increased [Unknown]
  - Muscle tightness [Unknown]
  - Hydrocephalus [Unknown]
  - Fatigue [Unknown]
  - Feeling of despair [Not Recovered/Not Resolved]
  - Alopecia [Unknown]
  - Feeling abnormal [Unknown]
  - Blood pressure increased [Unknown]
  - General physical condition abnormal [Unknown]
  - Gait disturbance [Unknown]
  - Abdominal distension [Unknown]
  - Amnesia [Unknown]
  - Sensory loss [Unknown]
  - Burning sensation [Not Recovered/Not Resolved]
  - Back pain [Unknown]
  - Irritability [Unknown]
  - Thinking abnormal [Unknown]
  - Back disorder [Unknown]
  - Confusional state [Unknown]
  - Nervousness [Unknown]
  - Abdominal pain [Unknown]
  - Asthenia [Unknown]
  - Constipation [Unknown]
  - Tremor [Unknown]
  - Headache [Unknown]

NARRATIVE: CASE EVENT DATE: 20180410
